FAERS Safety Report 10713344 (Version 1)
Quarter: 2015Q1

REPORT INFORMATION
  Report Type: Spontaneous
  Country: US (occurrence: US)
  Receive Date: 20150115
  Receipt Date: 20150115
  Transmission Date: 20150721
  Serious: Yes (Hospitalization)
  Sender: FDA-Public Use
  Company Number: US-ALLERGAN-1500147US

PATIENT
  Sex: Female

DRUGS (2)
  1. BOTOX [Suspect]
     Active Substance: ONABOTULINUMTOXINA
     Indication: MIGRAINE
     Dosage: UNK, SINGLE
     Dates: start: 20141231, end: 20141231
  2. UNSPECIFIED ANXIETY MEDICATION [Concomitant]
     Indication: ANXIETY
     Dosage: UNK, PRN

REACTIONS (13)
  - Throat tightness [Not Recovered/Not Resolved]
  - Musculoskeletal stiffness [Not Recovered/Not Resolved]
  - Dysphonia [Not Recovered/Not Resolved]
  - Rash [Unknown]
  - Dysphagia [Not Recovered/Not Resolved]
  - Dyspnoea [Unknown]
  - Nasal congestion [Not Recovered/Not Resolved]
  - Cough [Not Recovered/Not Resolved]
  - Discomfort [Unknown]
  - Somnolence [Unknown]
  - Asthenia [Not Recovered/Not Resolved]
  - Head discomfort [Unknown]
  - Tongue disorder [Unknown]

NARRATIVE: CASE EVENT DATE: 20150102
